FAERS Safety Report 7684998-4 (Version None)
Quarter: 2011Q3

REPORT INFORMATION
  Report Type: 
  Country: None (occurrence: None)
  Receive Date: 20110816
  Receipt Date: 20110804
  Transmission Date: 20111222
  Serious: Yes (Other)
  Sender: FDA-Public Use
  Company Number: CA-JNJFOC-20110603282

PATIENT
  Sex: Male
  Weight: 99.5 kg

DRUGS (5)
  1. METHOTREXATE [Concomitant]
     Route: 065
  2. REMICADE [Suspect]
     Indication: PSORIATIC ARTHROPATHY
     Route: 042
     Dates: start: 20081128
  3. LIPITOR [Concomitant]
     Route: 065
  4. ADVIL LIQUI-GELS [Concomitant]
  5. ATACAND [Concomitant]
     Route: 065

REACTIONS (3)
  - PNEUMONIA [None]
  - GASTRIC ULCER [None]
  - COLONIC POLYP [None]
